FAERS Safety Report 8235636-3 (Version None)
Quarter: 2012Q1

REPORT INFORMATION
  Report Type: 
  Country: None (occurrence: None)
  Receive Date: 20120323
  Receipt Date: 20120309
  Transmission Date: 20120608
  Serious: Yes (Other)
  Sender: FDA-Public Use
  Company Number: COL_11182_2012

PATIENT
  Age: 67 Year
  Sex: Female

DRUGS (3)
  1. MEDICATION FOR ARTHRITIS [Concomitant]
  2. COLGATE SENSITIVE WHITENING TOOTHPASTE [Suspect]
     Indication: DENTAL CARIES
     Dosage: (NI/1X/ ORAL)
     Route: 048
     Dates: start: 20120218, end: 20120218
  3. ANTIGLAUCOMA PREPARATIONS AND MIOTICS [Concomitant]

REACTIONS (1)
  - ANAPHYLACTIC REACTION [None]
